FAERS Safety Report 9171139 (Version 2)
Quarter: 2015Q2

REPORT INFORMATION
  Report Type: Spontaneous
  Country: US (occurrence: US)
  Receive Date: 20130319
  Receipt Date: 20150526
  Transmission Date: 20150821
  Serious: Yes (Congenital Anomaly, Other)
  Sender: FDA-Public Use
  Company Number: US-ELI_LILLY_AND_COMPANY-US201303003428

PATIENT

DRUGS (6)
  1. METHYLDOPA. [Concomitant]
     Active Substance: METHYLDOPA
     Indication: HYPERTENSION
     Dosage: 500 MG, TID
     Route: 064
  2. PROZAC [Suspect]
     Active Substance: FLUOXETINE HYDROCHLORIDE
     Indication: DEPRESSION
     Dosage: 1 DF, UNKNOWN
     Route: 064
  3. HYDROCHLOROTHIAZIDE. [Concomitant]
     Active Substance: HYDROCHLOROTHIAZIDE
     Dosage: UNK
     Route: 064
  4. CLONIDINE. [Concomitant]
     Active Substance: CLONIDINE
     Dosage: UNK
     Route: 064
  5. METHYLDOPA. [Concomitant]
     Active Substance: METHYLDOPA
     Dosage: 500 MG, QD
     Route: 064
  6. LEXAPRO [Concomitant]
     Active Substance: ESCITALOPRAM OXALATE
     Dosage: 10 MG, QD
     Route: 064

REACTIONS (12)
  - Autism [Unknown]
  - Dacryostenosis congenital [Unknown]
  - Shoulder dystocia [Unknown]
  - Blindness [Unknown]
  - Foetal hypokinesia [Unknown]
  - Craniosynostosis [Unknown]
  - Congenital nose malformation [Unknown]
  - Premature baby [Unknown]
  - Microphthalmos [Unknown]
  - Large for dates baby [Unknown]
  - Spine malformation [Unknown]
  - Foetal exposure during pregnancy [Recovered/Resolved]
